FAERS Safety Report 9363135 (Version 3)
Quarter: 2013Q3

REPORT INFORMATION
  Report Type: Spontaneous
  Country: US (occurrence: US)
  Receive Date: 20130624
  Receipt Date: 20130923
  Transmission Date: 20140515
  Serious: Yes (Hospitalization, Other)
  Sender: FDA-Public Use
  Company Number: US-BIOGENIDEC-2013BI054911

PATIENT
  Age: 49 Year
  Sex: Female

DRUGS (34)
  1. AVONEX [Suspect]
     Indication: MULTIPLE SCLEROSIS
     Route: 030
     Dates: start: 19990901
  2. AVONEX [Suspect]
     Indication: MULTIPLE SCLEROSIS
     Route: 030
     Dates: end: 20130705
  3. TYSABRI [Concomitant]
     Indication: MULTIPLE SCLEROSIS
  4. AMPYRA [Concomitant]
     Indication: GAIT DISTURBANCE
     Route: 048
     Dates: start: 20130517, end: 201305
  5. AMPYRA [Concomitant]
     Indication: MULTIPLE SCLEROSIS
     Route: 048
     Dates: start: 20130517, end: 201305
  6. AMPYRA [Concomitant]
     Indication: GAIT DISTURBANCE
     Route: 048
     Dates: start: 201305, end: 201305
  7. AMPYRA [Concomitant]
     Indication: MULTIPLE SCLEROSIS
     Route: 048
     Dates: start: 201305, end: 201305
  8. AMPYRA [Concomitant]
     Indication: GAIT DISTURBANCE
     Route: 048
     Dates: start: 2013, end: 20130621
  9. AMPYRA [Concomitant]
     Indication: MULTIPLE SCLEROSIS
     Route: 048
     Dates: start: 2013, end: 20130621
  10. AMPYRA [Concomitant]
     Indication: GAIT DISTURBANCE
     Route: 048
     Dates: start: 20130622, end: 2013
  11. AMPYRA [Concomitant]
     Indication: MULTIPLE SCLEROSIS
     Route: 048
     Dates: start: 20130622, end: 2013
  12. AMPYRA [Concomitant]
     Indication: GAIT DISTURBANCE
     Route: 048
     Dates: start: 2013, end: 20130722
  13. AMPYRA [Concomitant]
     Indication: MULTIPLE SCLEROSIS
     Route: 048
     Dates: start: 2013, end: 20130722
  14. FLOMAX [Concomitant]
     Dates: start: 2008
  15. HYDROCHLOROTHIAZIDE [Concomitant]
     Dates: start: 1998
  16. ASPIRIN [Concomitant]
     Dates: start: 1988
  17. INDERAL [Concomitant]
     Dates: start: 1988
  18. TRAMADOL [Concomitant]
     Dates: start: 1988
  19. AMANTADINE [Concomitant]
     Indication: LETHARGY
  20. EFFEXOR [Concomitant]
  21. OXYBUTYNIN [Concomitant]
     Dates: start: 2008
  22. POTASSIUM [Concomitant]
     Dates: start: 1998
  23. ACTIGALL [Concomitant]
  24. BACLOFEN [Concomitant]
     Dates: start: 2008
  25. FLEXERIL [Concomitant]
     Dates: start: 2008
  26. CLONAZEPAM [Concomitant]
  27. CYMBALTA [Concomitant]
     Dates: start: 2009
  28. LACTULOSE [Concomitant]
     Dates: start: 2012
  29. ZANTAC [Concomitant]
  30. FISH OIL [Concomitant]
  31. BEANO [Concomitant]
  32. BIOTIN [Concomitant]
  33. VITAMIN D [Concomitant]
  34. COLACE [Concomitant]

REACTIONS (39)
  - Gallbladder disorder [Recovered/Resolved]
  - Gait disturbance [Recovered/Resolved]
  - Petechiae [Recovered/Resolved]
  - Blood pressure increased [Recovered/Resolved]
  - Nerve compression [Unknown]
  - Cyst [Unknown]
  - Fractured sacrum [Unknown]
  - Cystitis [Recovered/Resolved]
  - Osteonecrosis [Not Recovered/Not Resolved]
  - Fall [Recovered/Resolved]
  - Vitiligo [Not Recovered/Not Resolved]
  - Photosensitivity reaction [Unknown]
  - Amnesia [Unknown]
  - Peripheral nerve injury [Unknown]
  - Burning sensation [Recovered/Resolved]
  - Tremor [Recovered/Resolved]
  - Oedema peripheral [Recovered/Resolved]
  - Musculoskeletal disorder [Recovered/Resolved]
  - Dermatitis allergic [Recovered/Resolved]
  - Pain [Recovered/Resolved]
  - Muscular weakness [Recovered/Resolved]
  - Pain in extremity [Recovered/Resolved]
  - Chills [Recovered/Resolved]
  - Joint stiffness [Recovered/Resolved]
  - Drug hypersensitivity [Recovered/Resolved]
  - Cognitive disorder [Recovered/Resolved]
  - Biliary cirrhosis primary [Unknown]
  - Autoimmune hepatitis [Not Recovered/Not Resolved]
  - Gastrooesophageal reflux disease [Not Recovered/Not Resolved]
  - Cholelithiasis [Recovered/Resolved]
  - Laryngospasm [Recovered/Resolved]
  - Dysphagia [Recovered/Resolved]
  - Arthralgia [Recovered/Resolved]
  - Nerve injury [Unknown]
  - Lethargy [Not Recovered/Not Resolved]
  - Hepatic enzyme increased [Recovered/Resolved]
  - Multiple sclerosis relapse [Recovered/Resolved]
  - Suicidal ideation [Recovered/Resolved]
  - Depression [Not Recovered/Not Resolved]
